FAERS Safety Report 6259609-5 (Version None)
Quarter: 2009Q3

REPORT INFORMATION
  Report Type: 
  Country: None (occurrence: None)
  Receive Date: 20090702
  Receipt Date: 20090527
  Transmission Date: 20100115
  Serious: Yes (Death)
  Sender: FDA-Public Use
  Company Number: A03200902376

PATIENT
  Age: 53 Year
  Sex: Male

DRUGS (15)
  1. OFORTA - (FLUDARABINE PHOSPHATE) [Suspect]
     Indication: ANAEMIA HAEMOLYTIC AUTOIMMUNE
     Dates: start: 20070101
  2. OFORTA - (FLUDARABINE PHOSPHATE) [Suspect]
     Indication: CHRONIC LYMPHOCYTIC LEUKAEMIA
     Dates: start: 20070101
  3. OFORTA - (FLUDARABINE PHOSPHATE) [Suspect]
     Indication: CHRONIC LYMPHOCYTIC LEUKAEMIA STAGE 2
     Dates: start: 20070101
  4. OFORTA - (FLUDARABINE PHOSPHATE) [Suspect]
     Indication: MALIGNANT NEOPLASM PROGRESSION
     Dates: start: 20070101
  5. OFORTA - (FLUDARABINE PHOSPHATE) [Suspect]
     Indication: ANAEMIA HAEMOLYTIC AUTOIMMUNE
     Dates: start: 20010101
  6. OFORTA - (FLUDARABINE PHOSPHATE) [Suspect]
     Indication: CHRONIC LYMPHOCYTIC LEUKAEMIA
     Dates: start: 20010101
  7. OFORTA - (FLUDARABINE PHOSPHATE) [Suspect]
     Indication: CHRONIC LYMPHOCYTIC LEUKAEMIA STAGE 2
     Dates: start: 20010101
  8. OFORTA - (FLUDARABINE PHOSPHATE) [Suspect]
     Indication: MALIGNANT NEOPLASM PROGRESSION
     Dates: start: 20010101
  9. OFORTA - (FLUDARABINE PHOSPHATE) [Suspect]
     Indication: ANAEMIA HAEMOLYTIC AUTOIMMUNE
     Dates: start: 20051201
  10. OFORTA - (FLUDARABINE PHOSPHATE) [Suspect]
     Indication: CHRONIC LYMPHOCYTIC LEUKAEMIA
     Dates: start: 20051201
  11. OFORTA - (FLUDARABINE PHOSPHATE) [Suspect]
     Indication: CHRONIC LYMPHOCYTIC LEUKAEMIA STAGE 2
     Dates: start: 20051201
  12. OFORTA - (FLUDARABINE PHOSPHATE) [Suspect]
     Indication: MALIGNANT NEOPLASM PROGRESSION
     Dates: start: 20051201
  13. CAMPATH [Suspect]
     Indication: CHRONIC LYMPHOCYTIC LEUKAEMIA STAGE 2
     Dates: start: 20070601
  14. RITUXIMAB (RITUXIMAB) [Concomitant]
  15. CYCLOPHOSPHAMIDE [Concomitant]

REACTIONS (13)
  - ALANINE AMINOTRANSFERASE INCREASED [None]
  - ANAEMIA HAEMOLYTIC AUTOIMMUNE [None]
  - ASPARTATE AMINOTRANSFERASE INCREASED [None]
  - BLOOD LACTATE DEHYDROGENASE INCREASED [None]
  - CYTOMEGALOVIRUS INFECTION [None]
  - DIFFUSE LARGE B-CELL LYMPHOMA STAGE IV [None]
  - DISEASE PROGRESSION [None]
  - EPSTEIN-BARR VIRUS INFECTION [None]
  - HEPATIC LESION [None]
  - HEPATOMEGALY [None]
  - HYPOALBUMINAEMIA [None]
  - MULTI-ORGAN FAILURE [None]
  - NO THERAPEUTIC RESPONSE [None]
